FAERS Safety Report 4748627-1 (Version None)
Quarter: 2005Q3

REPORT INFORMATION
  Report Type: 
  Country: None (occurrence: None)
  Receive Date: 20050817
  Receipt Date: 20050809
  Transmission Date: 20060218
  Serious: No
  Sender: FDA-Public Use
  Company Number: 2005-165

PATIENT
  Sex: Female
  Weight: 58.9676 kg

DRUGS (1)
  1. OXYBUTYNIN CHLORIDE [Suspect]
     Indication: URINARY INCONTINENCE
     Dosage: 1/2 TAB TWICE A DAY
     Dates: start: 20000101

REACTIONS (3)
  - CATARACT [None]
  - DRY MOUTH [None]
  - GLAUCOMA [None]
